FAERS Safety Report 24251157 (Version 3)
Quarter: 2025Q2

REPORT INFORMATION
  Report Type: Report from Study
  Country: US (occurrence: US)
  Receive Date: 20240826
  Receipt Date: 20250611
  Transmission Date: 20250717
  Serious: No
  Sender: SUNOVION
  Company Number: US-SUMITOMO PHARMA SWITZERLAND GMBH-2024SPA000945

PATIENT

DRUGS (3)
  1. ORGOVYX [Suspect]
     Active Substance: RELUGOLIX
     Indication: Prostate cancer
     Dosage: 360 MG, SINGLE
     Route: 048
     Dates: start: 20240716, end: 20240716
  2. ORGOVYX [Suspect]
     Active Substance: RELUGOLIX
     Dosage: 120 MG, QD
     Route: 048
     Dates: start: 20240717
  3. AMBIEN [Concomitant]
     Active Substance: ZOLPIDEM TARTRATE
     Dosage: 5 MG, HS
     Route: 065

REACTIONS (7)
  - Sleep disorder [Unknown]
  - Feeling abnormal [Unknown]
  - Muscle atrophy [Unknown]
  - Hot flush [Unknown]
  - Hyperhidrosis [Unknown]
  - Asthenia [Unknown]
  - Arthralgia [Unknown]
